FAERS Safety Report 7162436-8 (Version None)
Quarter: 2010Q4

REPORT INFORMATION
  Report Type: 
  Country: None (occurrence: None)
  Receive Date: 20101215
  Receipt Date: 20091103
  Transmission Date: 20110411
  Serious: Yes (Death)
  Sender: FDA-Public Use
  Company Number: BO-PFIZER INC-2009293300

PATIENT
  Sex: Female

DRUGS (2)
  1. LYRICA [Suspect]
     Indication: NEURALGIA
     Dosage: 150 MG, 1X/DAY
     Route: 048
     Dates: start: 20090924
  2. MORPHINE [Concomitant]
     Indication: CANCER PAIN
     Dosage: UNK
     Route: 048

REACTIONS (1)
  - NON-HODGKIN'S LYMPHOMA [None]
